FAERS Safety Report 9255624 (Version 1)
Quarter: 2013Q2

REPORT INFORMATION
  Report Type: Spontaneous
  Country: JP (occurrence: JP)
  Receive Date: 20130425
  Receipt Date: 20130425
  Transmission Date: 20140414
  Serious: Yes (Other)
  Sender: FDA-Public Use
  Company Number: JP-GLAXOSMITHKLINE-B0884998A

PATIENT
  Age: 38 Year
  Sex: Female

DRUGS (3)
  1. VALTREX [Suspect]
     Indication: PRODUCT USED FOR UNKNOWN INDICATION
     Route: 048
  2. HACHIAZULE [Concomitant]
     Route: 048
  3. XYLOCAINE [Concomitant]
     Route: 065

REACTIONS (2)
  - Haemorrhage subcutaneous [Unknown]
  - Yellow skin [Unknown]
